FAERS Safety Report 10191122 (Version 1)
Quarter: 2014Q2

REPORT INFORMATION
  Report Type: Spontaneous
  Country: GB (occurrence: GB)
  Receive Date: 20140523
  Receipt Date: 20140523
  Transmission Date: 20141212
  Serious: Yes (Other)
  Sender: FDA-Public Use
  Company Number: GB-MYLANLABS-2014S1011011

PATIENT
  Age: 46 Year
  Sex: Male

DRUGS (7)
  1. CITALOPRAM [Suspect]
     Indication: DEPRESSION
     Route: 065
  2. MIRTAZAPINE [Suspect]
     Indication: DEPRESSION
     Route: 065
  3. SEROXAT [Suspect]
     Indication: DEPRESSION
     Route: 065
  4. TERBINAFINE [Suspect]
     Indication: DERMAL CYST
     Dosage: UNK
     Route: 065
     Dates: start: 2013, end: 2013
  5. TERBINAFINE [Suspect]
     Indication: TINEA INFECTION
     Dosage: UNK
     Route: 065
     Dates: start: 2013, end: 2013
  6. TERBINAFINE [Suspect]
     Indication: DERMAL CYST
  7. TERBINAFINE [Suspect]
     Indication: TINEA INFECTION

REACTIONS (12)
  - Somatic delusion [Unknown]
  - Formication [Unknown]
  - Feeling abnormal [Unknown]
  - Musculoskeletal stiffness [Unknown]
  - Alopecia [Unknown]
  - Skin exfoliation [Unknown]
  - Stress [Unknown]
  - Tremor [Unknown]
  - Speech disorder [Unknown]
  - Anxiety [Unknown]
  - Alcohol use [Unknown]
  - Drug abuser [Unknown]
